FAERS Safety Report 7647980-9 (Version None)
Quarter: 2011Q3

REPORT INFORMATION
  Report Type: 
  Country: None (occurrence: None)
  Receive Date: 20110801
  Receipt Date: 20110518
  Transmission Date: 20111222
  Serious: No
  Sender: FDA-Public Use
  Company Number: US-ABBOTT-11P-163-0804590-00

PATIENT
  Sex: Female
  Weight: 43.181 kg

DRUGS (3)
  1. PANCREATIN TRIPLE STRENGTH CAP [Suspect]
     Indication: MALNUTRITION
     Dosage: DAILY DOSE:  UNKNOWN
     Route: 065
     Dates: start: 20100101
  2. IRBESARTAN [Concomitant]
     Indication: BLOOD PRESSURE
     Dosage: DAILY DOSE:  UNKNOWN
     Route: 065
  3. OMEPRAZOLE [Concomitant]
     Indication: GASTROOESOPHAGEAL REFLUX DISEASE
     Dosage: DAILY DOSE:  UNKNOWN
     Route: 065

REACTIONS (3)
  - FREQUENT BOWEL MOVEMENTS [None]
  - ABNORMAL FAECES [None]
  - BREAST PAIN [None]
